FAERS Safety Report 8241366-4 (Version None)
Quarter: 2012Q1

REPORT INFORMATION
  Report Type: 
  Country: None (occurrence: None)
  Receive Date: 20120328
  Receipt Date: 20120320
  Transmission Date: 20120608
  Serious: Yes (Other)
  Sender: FDA-Public Use
  Company Number: PHEH2012US002248

PATIENT
  Sex: Female

DRUGS (8)
  1. VITAMINS NOS [Concomitant]
  2. AMOXICILLIN [Suspect]
     Dosage: 500 MG, BID
  3. EXELON [Suspect]
     Dosage: 4.6 MG/24 HOURS
     Route: 062
  4. CALCIUM CARBONATE [Concomitant]
  5. FOLIC ACID [Concomitant]
  6. ASPIRIN [Concomitant]
  7. NUTRITION SUPPLEMENTS [Concomitant]
  8. CRESTOR [Concomitant]
     Dosage: 20 MG, UNK

REACTIONS (6)
  - ARTHRALGIA [None]
  - ARTHRITIS [None]
  - MUSCULOSKELETAL PAIN [None]
  - CYSTITIS [None]
  - FEELING ABNORMAL [None]
  - FATIGUE [None]
